FAERS Safety Report 6634224-X (Version None)
Quarter: 2010Q1

REPORT INFORMATION
  Report Type: 
  Country: None (occurrence: None)
  Receive Date: 20100311
  Receipt Date: 20100311
  Transmission Date: 20100710
  Serious: Yes (Hospitalization)
  Sender: FDA-Public Use
  Company Number: None

PATIENT
  Age: 77 Year
  Sex: Female
  Weight: 61.2356 kg

DRUGS (1)
  1. RANIBIZUMAB 2MG [Suspect]
     Indication: MACULAR DEGENERATION
     Dosage: 0.5ML ONCE A MONTH INTRAOCULAR, USED ONLY ONCE
     Route: 031
     Dates: start: 20100128, end: 20100128

REACTIONS (4)
  - HYPONATRAEMIA [None]
  - OEDEMA PERIPHERAL [None]
  - PNEUMONIA [None]
  - RENAL FAILURE ACUTE [None]
